FAERS Safety Report 7981527-2 (Version None)
Quarter: 2011Q4

REPORT INFORMATION
  Report Type: 
  Country: None (occurrence: None)
  Receive Date: 20111215
  Receipt Date: 20111213
  Transmission Date: 20120403
  Serious: Yes (Life-Threatening)
  Sender: FDA-Public Use
  Company Number: FR-PFIZER INC-2011302835

PATIENT
  Sex: Male

DRUGS (5)
  1. MORPHINE SULFATE [Suspect]
     Dosage: UNK
     Route: 048
     Dates: start: 20111019, end: 20111021
  2. CORDARONE [Concomitant]
     Dosage: 200 MG
     Dates: start: 20111018
  3. NEURONTIN [Suspect]
     Dosage: UNK
     Route: 048
     Dates: start: 20111020, end: 20111021
  4. DURAGESIC-100 [Suspect]
     Dosage: UNK
     Route: 062
     Dates: start: 20111021, end: 20111021
  5. BISOPROLOL FUMARATE [Concomitant]
     Dosage: 2.5 MG
     Dates: start: 20111018

REACTIONS (1)
  - COMA [None]
